FAERS Safety Report 8701874 (Version 7)
Quarter: 2014Q1

REPORT INFORMATION
  Report Type: Report from Study
  Country: JP (occurrence: JP)
  Receive Date: 20120803
  Receipt Date: 20140328
  Transmission Date: 20141002
  Serious: Yes (Other)
  Sender: FDA-Public Use
  Company Number: JP-AMGEN-JPNCT2012048333

PATIENT
  Age: 81 Year
  Sex: Male
  Weight: 52 kg

DRUGS (11)
  1. DARBEPOETIN ALFA [Suspect]
     Indication: NEPHROGENIC ANAEMIA
     Dosage: 120 MUG, Q4WK
     Route: 058
     Dates: start: 20111124
  2. ALOSITOL [Concomitant]
     Dosage: UNK
     Route: 048
  3. NU-LOTAN [Concomitant]
     Dosage: 50 MG, QD
     Route: 048
  4. BAYASPIRIN [Concomitant]
     Dosage: UNK
     Route: 048
  5. LOCHOL [Concomitant]
     Dosage: UNK
     Route: 048
  6. FERROMIA [Concomitant]
     Dosage: UNK
     Route: 048
  7. PERSANTIN [Concomitant]
     Indication: GLOMERULONEPHRITIS CHRONIC
     Dosage: UNK
     Route: 048
  8. KREMEZIN [Concomitant]
     Indication: GLOMERULONEPHRITIS CHRONIC
     Dosage: UNK
     Route: 048
  9. CONIEL [Concomitant]
     Dosage: UNK
     Route: 048
  10. EVIPROSTAT                         /05927901/ [Concomitant]
     Dosage: UNK
     Route: 048
  11. ATELEC [Concomitant]
     Dosage: UNK
     Route: 048

REACTIONS (4)
  - Renal failure [Recovering/Resolving]
  - Eczema [Recovered/Resolved]
  - Protein urine present [Recovering/Resolving]
  - Hypertension [Recovering/Resolving]
